FAERS Safety Report 13572977 (Version 1)
Quarter: 2017Q2

REPORT INFORMATION
  Report Type: Spontaneous
  Country: US (occurrence: US)
  Receive Date: 20170523
  Receipt Date: 20170523
  Transmission Date: 20170830
  Serious: Yes (Other)
  Sender: FDA-Public Use
  Company Number: US-NOVOPROD-495709

PATIENT
  Age: 67 Year
  Sex: Female
  Weight: 52.15 kg

DRUGS (2)
  1. ARMOUR THYROID [Concomitant]
     Active Substance: THYROID, PORCINE
     Indication: AUTOIMMUNE THYROIDITIS
     Dosage: 60 MG, QD
  2. NORDITROPIN [Suspect]
     Active Substance: SOMATROPIN
     Indication: ASTHENIA
     Dosage: 0.2 MG, QD
     Route: 058
     Dates: start: 20160520, end: 20160601

REACTIONS (5)
  - Pancreatitis [Recovered/Resolved]
  - Insomnia [Recovered/Resolved]
  - Pain [Recovered/Resolved]
  - Off label use [Recovered/Resolved]
  - Fatigue [Recovered/Resolved]

NARRATIVE: CASE EVENT DATE: 20160520
